FAERS Safety Report 14035078 (Version 1)
Quarter: 2017Q4

REPORT INFORMATION
  Report Type: Spontaneous
  Country: US (occurrence: US)
  Receive Date: 20171003
  Receipt Date: 20171003
  Transmission Date: 20180321
  Serious: Yes (Hospitalization)
  Sender: FDA-Public Use
  Company Number: US-HERITAGE PHARMACEUTICALS-2017HTG00284

PATIENT
  Age: 74 Year
  Sex: Female

DRUGS (1)
  1. LEFLUNOMIDE. [Suspect]
     Active Substance: LEFLUNOMIDE
     Indication: RHEUMATOID ARTHRITIS
     Route: 065

REACTIONS (5)
  - Multiple organ dysfunction syndrome [Recovering/Resolving]
  - Staphylococcal infection [Recovering/Resolving]
  - Toxicity to various agents [Recovering/Resolving]
  - Arthritis bacterial [Recovering/Resolving]
  - Septic shock [Recovering/Resolving]
